FAERS Safety Report 8947997 (Version 1)
Quarter: 2012Q4

REPORT INFORMATION
  Report Type: Spontaneous
  Country: US (occurrence: None)
  Receive Date: 20121203
  Receipt Date: 20121203
  Transmission Date: 20130627
  Serious: Yes (Other)
  Sender: FDA-Public Use
  Company Number: None

PATIENT
  Age: 65 Year
  Sex: Female
  Weight: 70.31 kg

DRUGS (2)
  1. MONTELUKAST [Suspect]
     Route: 048
     Dates: start: 20121115, end: 20121129
  2. MONTELUKAST [Suspect]
     Route: 048
     Dates: start: 20121115, end: 20121129

REACTIONS (3)
  - Asthma [None]
  - Feeling abnormal [None]
  - Product substitution issue [None]
